FAERS Safety Report 9015554 (Version 1)
Quarter: 2013Q1

REPORT INFORMATION
  Report Type: Spontaneous
  Country: US (occurrence: None)
  Receive Date: 20130102
  Receipt Date: 20130102
  Transmission Date: 20140127
  Serious: Yes (Hospitalization)
  Sender: FDA-Public Use
  Company Number: 1545024

PATIENT
  Age: 59 Year
  Sex: Female

DRUGS (5)
  1. GENTAMICIN SULFATE [Suspect]
     Indication: DEVICE RELATED INFECTION
     Route: 042
  2. VANCOMYCIN [Concomitant]
  3. VITAMINS /90003601/ [Concomitant]
  4. ANTIHYPERTENSIVES [Concomitant]
  5. DRUG USED IN DIABETES [Concomitant]

REACTIONS (4)
  - Myoclonus [None]
  - Asterixis [None]
  - Hyporeflexia [None]
  - Incorrect dose administered [None]
